FAERS Safety Report 6594088-X (Version None)
Quarter: 2010Q1

REPORT INFORMATION
  Report Type: 
  Country: None (occurrence: None)
  Receive Date: 20100222
  Receipt Date: 20100216
  Transmission Date: 20100710
  Serious: Yes (Hospitalization)
  Sender: FDA-Public Use
  Company Number: FR-ROCHE-653347

PATIENT
  Sex: Male
  Weight: 83 kg

DRUGS (2)
  1. TOCILIZUMAB [Suspect]
     Indication: RHEUMATOID ARTHRITIS
     Dosage: LAST DOSE PRIOR TO SAE: 17 JULY 2009. DRUG TEMPORARILY INTERUPTED.
     Route: 042
     Dates: start: 20070525
  2. METHOTREXATE [Suspect]
     Indication: RHEUMATOID ARTHRITIS
     Dosage: FREQUENCY: AS PER PROTOCOL.
     Route: 048

REACTIONS (2)
  - CHOLECYSTITIS ACUTE [None]
  - TRANSIENT ISCHAEMIC ATTACK [None]
